FAERS Safety Report 7933662-2 (Version None)
Quarter: 2011Q4

REPORT INFORMATION
  Report Type: 
  Country: None (occurrence: None)
  Receive Date: 20111122
  Receipt Date: 20111121
  Transmission Date: 20120403
  Serious: Yes (Other)
  Sender: FDA-Public Use
  Company Number: IE-ROCHE-1010849

PATIENT
  Sex: Female
  Weight: 64.7 kg

DRUGS (4)
  1. FLUOROURACIL [Concomitant]
     Indication: COLORECTAL CANCER
     Route: 042
     Dates: start: 20110927
  2. IRINOTECAN HCL [Concomitant]
     Indication: COLORECTAL CANCER
     Route: 042
  3. FLUOROURACIL [Concomitant]
     Route: 042
     Dates: start: 20110927
  4. AVASTIN [Suspect]
     Indication: COLORECTAL CANCER
     Route: 042
     Dates: start: 20110927

REACTIONS (1)
  - LIVER FUNCTION TEST ABNORMAL [None]
